FAERS Safety Report 23076973 (Version 1)
Quarter: 2023Q4

REPORT INFORMATION
  Report Type: Spontaneous
  Country: JP (occurrence: JP)
  Receive Date: 20231018
  Receipt Date: 20231018
  Transmission Date: 20240109
  Serious: Yes (Hospitalization, Other)
  Sender: FDA-Public Use
  Company Number: JP-NOVITIUMPHARMA-2023JPNVP01805

PATIENT
  Age: 4 Year
  Sex: Male

DRUGS (10)
  1. DEXAMETHASONE [Suspect]
     Active Substance: DEXAMETHASONE
     Indication: B-cell type acute leukaemia
  2. ACETAZOLAMIDE [Suspect]
     Active Substance: ACETAZOLAMIDE
     Indication: Glaucoma
  3. TIMOLOL [Concomitant]
     Active Substance: TIMOLOL
     Indication: Glaucoma
  4. LATANOPROST [Concomitant]
     Active Substance: LATANOPROST
     Indication: Glaucoma
  5. BRIMONIDINE [Concomitant]
     Active Substance: BRIMONIDINE TARTRATE
     Indication: Glaucoma
  6. Carteolol/latanoprost [Concomitant]
     Indication: Glaucoma
  7. BRIMONIDINE TARTRATE\BRINZOLAMIDE [Concomitant]
     Active Substance: BRIMONIDINE TARTRATE\BRINZOLAMIDE
     Indication: Glaucoma
  8. VINCRISTINE [Concomitant]
     Active Substance: VINCRISTINE
     Indication: B-cell type acute leukaemia
  9. PIRARUBICIN [Concomitant]
     Active Substance: PIRARUBICIN
     Indication: B-cell type acute leukaemia
  10. PREDNISOLONE [Concomitant]
     Active Substance: PREDNISOLONE
     Indication: B-cell type acute leukaemia
     Dosage: INCREASED

REACTIONS (2)
  - Drug ineffective [Unknown]
  - Glaucoma [Recovered/Resolved]
